FAERS Safety Report 21550799 (Version 2)
Quarter: 2022Q4

REPORT INFORMATION
  Report Type: Spontaneous
  Country: US (occurrence: US)
  Receive Date: 20221103
  Receipt Date: 20221221
  Transmission Date: 20230113
  Serious: No
  Sender: FDA-Public Use
  Company Number: US-PFIZER INC-PV202200089085

PATIENT
  Age: 57 Year
  Sex: Male

DRUGS (1)
  1. XELJANZ XR [Suspect]
     Active Substance: TOFACITINIB CITRATE
     Indication: Psoriatic arthropathy
     Dosage: 11 MG, WEEKLY (11 MG (ONE TABLET, EVERY TUESDAY 84 DAYS)
     Route: 048

REACTIONS (5)
  - Hepatic enzyme increased [Unknown]
  - Nephropathy [Unknown]
  - Blood pressure abnormal [Unknown]
  - Off label use [Unknown]
  - Product use issue [Unknown]
